FAERS Safety Report 24443558 (Version 2)
Quarter: 2024Q4

REPORT INFORMATION
  Report Type: Report from Study
  Country: CA (occurrence: CA)
  Receive Date: 20241016
  Receipt Date: 20241017
  Transmission Date: 20250114
  Serious: No
  Sender: ROCHE
  Company Number: CA-ROCHE-1244102

PATIENT
  Age: 46 Year
  Sex: Female
  Weight: 100.0 kg

DRUGS (12)
  1. RITUXAN [Suspect]
     Active Substance: RITUXIMAB
     Indication: Rheumatoid arthritis
     Dosage: MOST RECENT DOSE ON 22/JUL/2013
     Route: 041
     Dates: start: 20201207, end: 20240112
  2. RITUXAN [Suspect]
     Active Substance: RITUXIMAB
     Dosage: FREQUENCY TEXT:DAY 1, 15
     Route: 042
     Dates: start: 20100507, end: 20171123
  3. RITUXAN [Suspect]
     Active Substance: RITUXIMAB
     Dosage: DAY 1, DAY 15. ENROLLED IN RPAP FOR INFUSION OF 07/MAY/2010
     Route: 042
     Dates: start: 200805, end: 20171123
  4. DIPHENHYDRAMINE HYDROCHLORIDE [Concomitant]
     Active Substance: DIPHENHYDRAMINE HYDROCHLORIDE
     Indication: Premedication
     Route: 048
     Dates: start: 20100507
  5. DIPHENHYDRAMINE HYDROCHLORIDE [Concomitant]
     Active Substance: DIPHENHYDRAMINE HYDROCHLORIDE
     Route: 048
     Dates: start: 20150805
  6. ACETAMINOPHEN [Concomitant]
     Active Substance: ACETAMINOPHEN
     Indication: Premedication
     Route: 048
     Dates: start: 20100507
  7. METHYLPREDNISOLONE [Concomitant]
     Active Substance: METHYLPREDNISOLONE
     Indication: Premedication
     Route: 042
     Dates: start: 20100507
  8. LEVOTHYROXINE [Concomitant]
     Active Substance: LEVOTHYROXINE
  9. CELEBREX [Concomitant]
     Active Substance: CELECOXIB
  10. METHOTREXATE [Concomitant]
     Active Substance: METHOTREXATE
  11. CALCIUM [Concomitant]
     Active Substance: CALCIUM
  12. MELOXICAM [Concomitant]
     Active Substance: MELOXICAM

REACTIONS (9)
  - Weight increased [Not Recovered/Not Resolved]
  - Somnolence [Unknown]
  - Infusion related reaction [Recovered/Resolved]
  - Pruritus [Recovered/Resolved]
  - Drug ineffective [Unknown]
  - Pain [Not Recovered/Not Resolved]
  - Drug ineffective [Unknown]
  - Swollen joint count increased [Unknown]
  - Treatment failure [Unknown]

NARRATIVE: CASE EVENT DATE: 20130722
